FAERS Safety Report 9577189 (Version 3)
Quarter: 2013Q4

REPORT INFORMATION
  Report Type: Spontaneous
  Country: US (occurrence: US)
  Receive Date: 20131001
  Receipt Date: 20131028
  Transmission Date: 20140711
  Serious: Yes (Other)
  Sender: FDA-Public Use
  Company Number: CHPA2013US014812

PATIENT
  Age: 68 Year
  Sex: Female

DRUGS (12)
  1. PREVACID 24HR 15MG [Suspect]
     Indication: OFF LABEL USE
     Dosage: 15 MG, QD
     Route: 048
  2. DICLOFENAC [Concomitant]
     Dosage: UNK, UNK
  3. POTASSIUM CHLORIDE [Concomitant]
     Dosage: UNK, UNK
  4. PRAVASTATIN [Concomitant]
     Dosage: UNK, UNK
  5. ESTRADIOL [Concomitant]
     Dosage: UNK, UNK
  6. LASIX [Concomitant]
     Indication: POOR PERIPHERAL CIRCULATION
     Dosage: UNK, UNK
  7. SERTRALINE [Concomitant]
     Dosage: UNK, UNK
  8. CYMBALTA [Concomitant]
     Dosage: UNK, UNK
  9. DEPAKOTE [Concomitant]
     Dosage: UNK, UNK
  10. ROPINIROLE [Concomitant]
     Dosage: UNK, UNK
  11. FENTANYL [Concomitant]
     Dosage: 50 MG, UNK
     Route: 062
  12. NITROGLYCERIN [Concomitant]

REACTIONS (2)
  - Osteoarthritis [Recovered/Resolved]
  - Incorrect drug administration duration [Unknown]
